FAERS Safety Report 22359697 (Version 3)
Quarter: 2023Q4

REPORT INFORMATION
  Report Type: Spontaneous
  Country: US (occurrence: US)
  Receive Date: 20230524
  Receipt Date: 20231010
  Transmission Date: 20240109
  Serious: Yes (Other)
  Sender: FDA-Public Use
  Company Number: US-BAYER-2023A066412

PATIENT
  Sex: Female

DRUGS (1)
  1. KYLEENA [Suspect]
     Active Substance: LEVONORGESTREL
     Indication: Contraception
     Dosage: 17.5?G/DAY
     Route: 015
     Dates: start: 201904

REACTIONS (5)
  - Device expulsion [Not Recovered/Not Resolved]
  - Complication of device removal [None]
  - Procedural pain [None]
  - Anxiety [None]
  - Adnexa uteri pain [None]

NARRATIVE: CASE EVENT DATE: 20230501
